FAERS Safety Report 4301877-0 (Version None)
Quarter: 2004Q1

REPORT INFORMATION
  Report Type: 
  Country: None (occurrence: None)
  Receive Date: 20040219
  Receipt Date: 20040212
  Transmission Date: 20041129
  Serious: Yes (Hospitalization)
  Sender: FDA-Public Use
  Company Number: TPA2004A00032

PATIENT
  Age: 45 Year
  Sex: Female
  Weight: 96.1626 kg

DRUGS (2)
  1. ACTOS [Suspect]
     Indication: DIABETES MELLITUS NON-INSULIN-DEPENDENT
     Dosage: 45 MG, 1 IN 1 D, PER ORAL
     Route: 048
     Dates: start: 20030112
  2. LANTUS (INSULIN GLARGINE) (40 IU (INTERNATIONAL UNIT)) [Concomitant]

REACTIONS (1)
  - CORONARY ARTERY OCCLUSION [None]
